FAERS Safety Report 15632679 (Version 3)
Quarter: 2019Q1

REPORT INFORMATION
  Report Type: Spontaneous
  Country: US (occurrence: US)
  Receive Date: 20181119
  Receipt Date: 20190104
  Transmission Date: 20190417
  Serious: No
  Sender: FDA-Public Use
  Company Number: US-BAYER-2018-213997

PATIENT
  Age: 21 Year
  Sex: Female

DRUGS (1)
  1. KYLEENA [Suspect]
     Active Substance: LEVONORGESTREL
     Indication: INTRA-UTERINE CONTRACEPTIVE DEVICE
     Dosage: 17.5 MCG/24HR, CONT
     Route: 015
     Dates: start: 2018, end: 20181210

REACTIONS (2)
  - Abdominal pain lower [None]
  - Menorrhagia [None]

NARRATIVE: CASE EVENT DATE: 2018
